FAERS Safety Report 16054155 (Version 3)
Quarter: 2019Q3

REPORT INFORMATION
  Report Type: Spontaneous
  Country: US (occurrence: US)
  Receive Date: 20190308
  Receipt Date: 20190920
  Transmission Date: 20191004
  Serious: Yes (Hospitalization)
  Sender: FDA-Public Use
  Company Number: US-ACTELION-A-US2019-187140

PATIENT
  Age: 54 Year
  Sex: Female

DRUGS (4)
  1. ADEMPAS [Concomitant]
     Active Substance: RIOCIGUAT
     Dosage: 0.5 MG
  2. OPSUMIT [Suspect]
     Active Substance: MACITENTAN
     Indication: PULMONARY ARTERIAL HYPERTENSION
     Dosage: 10 MG, QD
     Route: 048
     Dates: start: 20180620
  3. VELETRI [Suspect]
     Active Substance: EPOPROSTENOL
     Dosage: 72 NG/KG, PER MIN
     Route: 042
  4. VELETRI [Suspect]
     Active Substance: EPOPROSTENOL
     Indication: PULMONARY ARTERIAL HYPERTENSION
     Dosage: 64 NG/KG, PER MIN
     Route: 042
     Dates: start: 20180627

REACTIONS (7)
  - Respiratory syncytial virus infection [Recovering/Resolving]
  - Internal haemorrhage [Unknown]
  - Cough [Recovering/Resolving]
  - Gallbladder disorder [Unknown]
  - Hypotension [Unknown]
  - Wheezing [Recovering/Resolving]
  - Cholecystectomy [Unknown]

NARRATIVE: CASE EVENT DATE: 201907
